FAERS Safety Report 5149449-2 (Version None)
Quarter: 2006Q4

REPORT INFORMATION
  Report Type: 
  Country: None (occurrence: None)
  Receive Date: 20061113
  Receipt Date: 20060120
  Transmission Date: 20070319
  Serious: No
  Sender: FDA-Public Use
  Company Number: 433190

PATIENT
  Age: 53 Year
  Sex: Male

DRUGS (3)
  1. COREG [Suspect]
     Indication: DRUG USE FOR UNKNOWN INDICATION
     Dosage: 6.25MG TWICE PER DAY
     Route: 048
     Dates: start: 20050801
  2. ENALAPRIL MALEATE [Concomitant]
  3. RHINOCORT [Concomitant]

REACTIONS (1)
  - DYSPNOEA [None]
